FAERS Safety Report 7547017-6 (Version None)
Quarter: 2011Q2

REPORT INFORMATION
  Report Type: 
  Country: None (occurrence: None)
  Receive Date: 20110614
  Receipt Date: 20110608
  Transmission Date: 20111010
  Serious: Yes (Death)
  Sender: FDA-Public Use
  Company Number: TN-SANOFI-AVENTIS-2011SA036633

PATIENT
  Age: 85 Year
  Sex: Male

DRUGS (7)
  1. PLAVIX [Suspect]
     Route: 048
     Dates: start: 20110420, end: 20110606
  2. POTASSIUM CHLORIDE [Concomitant]
     Dates: end: 20110606
  3. PLAVIX [Suspect]
     Indication: MYOCARDIAL INFARCTION
     Route: 048
     Dates: start: 20110420, end: 20110606
  4. ASPEGIC 325 [Concomitant]
     Dates: end: 20110606
  5. ATORVASTATIN [Concomitant]
     Dates: end: 20110606
  6. LASIX [Concomitant]
     Dates: end: 20110606
  7. RAMIPRIL [Concomitant]
     Dates: end: 20110606

REACTIONS (1)
  - CONGESTIVE CARDIOMYOPATHY [None]
